FAERS Safety Report 6802880-9 (Version None)
Quarter: 2010Q2

REPORT INFORMATION
  Report Type: 
  Country: None (occurrence: None)
  Receive Date: 20100628
  Receipt Date: 20100618
  Transmission Date: 20101027
  Serious: Yes (Hospitalization)
  Sender: FDA-Public Use
  Company Number: GR-SANOFI-AVENTIS-2010SA035121

PATIENT
  Age: 53 Year
  Sex: Female

DRUGS (3)
  1. PLAQUENIL [Suspect]
     Indication: RHEUMATOID ARTHRITIS
     Route: 048
     Dates: start: 20100608, end: 20100609
  2. PROPAFENONE HCL [Concomitant]
     Indication: ARRHYTHMIA
     Route: 065
  3. CORTIZONE [Concomitant]
     Indication: DRUG USE FOR UNKNOWN INDICATION
     Route: 065
     Dates: start: 20100508

REACTIONS (1)
  - SUPRAVENTRICULAR TACHYCARDIA [None]
